FAERS Safety Report 4349247-3 (Version None)
Quarter: 2004Q2

REPORT INFORMATION
  Report Type: 
  Country: None (occurrence: None)
  Receive Date: 20040428
  Receipt Date: 20040420
  Transmission Date: 20050107
  Serious: Yes (Death, Hospitalization)
  Sender: FDA-Public Use
  Company Number: NZ-MERCK-0404NZL00019

PATIENT
  Age: 79 Year
  Sex: Female

DRUGS (10)
  1. ESTROGENS (UNSPECIFIED) [Concomitant]
     Route: 065
  2. FUROSEMIDE [Concomitant]
     Route: 065
  3. ISOSORBIDE MONONITRATE [Concomitant]
     Route: 065
  4. PANTOPRAZOLE [Concomitant]
     Route: 065
  5. PERHEXILINE MALEATE [Concomitant]
     Route: 065
  6. ZOCOR [Suspect]
     Route: 048
  7. ZOCOR [Suspect]
     Route: 048
  8. WARFARIN [Concomitant]
     Route: 065
  9. ATENOLOL [Concomitant]
     Route: 065
  10. DILTIAZEM HYDROCHLORIDE [Suspect]
     Route: 048

REACTIONS (5)
  - CARDIAC FAILURE [None]
  - DRUG INTERACTION [None]
  - HAEMODIALYSIS [None]
  - RENAL FAILURE ACUTE [None]
  - RHABDOMYOLYSIS [None]
